FAERS Safety Report 7411409-6 (Version None)
Quarter: 2011Q2

REPORT INFORMATION
  Report Type: 
  Country: None (occurrence: None)
  Receive Date: 20110413
  Receipt Date: 20100726
  Transmission Date: 20111010
  Serious: Yes (Other)
  Sender: FDA-Public Use
  Company Number: US-BRISTOL-MYERS SQUIBB COMPANY-15210370

PATIENT
  Age: 70 Year
  Sex: Male

DRUGS (2)
  1. ERBITUX [Suspect]
     Dosage: 8-9CYCLES
  2. RADIATION THERAPY [Suspect]

REACTIONS (3)
  - STOMATITIS [None]
  - MUCOSAL INFLAMMATION [None]
  - OESOPHAGITIS [None]
